FAERS Safety Report 7095667-6 (Version None)
Quarter: 2010Q4

REPORT INFORMATION
  Report Type: 
  Country: None (occurrence: None)
  Receive Date: 20101111
  Receipt Date: 20090121
  Transmission Date: 20110411
  Serious: No
  Sender: FDA-Public Use
  Company Number: US-KINGPHARMUSA00001-K200900075

PATIENT

DRUGS (1)
  1. SKELAXIN [Suspect]
     Dosage: 800 MG, SINGLE
     Route: 048

REACTIONS (3)
  - ARTHRALGIA [None]
  - DISCOMFORT [None]
  - INSOMNIA [None]
